FAERS Safety Report 6520509-4 (Version None)
Quarter: 2009Q4

REPORT INFORMATION
  Report Type: 
  Country: None (occurrence: None)
  Receive Date: 20091229
  Receipt Date: 20091218
  Transmission Date: 20100525
  Serious: Yes (Death)
  Sender: FDA-Public Use
  Company Number: B0616130A

PATIENT
  Sex: Female

DRUGS (2)
  1. ALKERAN [Suspect]
     Indication: STEM CELL TRANSPLANT
     Dosage: 70MGM2 PER DAY
     Dates: start: 20030219, end: 20030227
  2. UNKNOWN DRUG [Suspect]
     Indication: STEM CELL TRANSPLANT
     Dates: start: 20030219, end: 20030227

REACTIONS (1)
  - PNEUMONIA [None]
